FAERS Safety Report 4299540-8 (Version None)
Quarter: 2004Q1

REPORT INFORMATION
  Report Type: 
  Country: None (occurrence: None)
  Receive Date: 20040217
  Receipt Date: 20040130
  Transmission Date: 20041129
  Serious: Yes (Hospitalization, Other)
  Sender: FDA-Public Use
  Company Number: 2003124669

PATIENT
  Age: 6 Year
  Sex: Male

DRUGS (2)
  1. GEODON [Suspect]
     Indication: OPPOSITIONAL DEFIANT DISORDER
     Dosage: 40 MG (ONE DOSE),
     Dates: start: 20031114
  2. BENZATROPINE MESILATE (BENZATROPINE MESILATE) [Concomitant]

REACTIONS (5)
  - DROOLING [None]
  - DYSTONIA [None]
  - HYPERSENSITIVITY [None]
  - SEDATION [None]
  - TONGUE DISORDER [None]
